FAERS Safety Report 13233404 (Version 1)
Quarter: 2017Q1

REPORT INFORMATION
  Report Type: Spontaneous
  Country: US (occurrence: US)
  Receive Date: 20170214
  Receipt Date: 20170214
  Transmission Date: 20170428
  Serious: Yes (Hospitalization)
  Sender: FDA-Public Use
  Company Number: None

PATIENT
  Age: 70 Year
  Sex: Female

DRUGS (13)
  1. METFORMIN [Suspect]
     Active Substance: METFORMIN HYDROCHLORIDE
     Indication: DIABETES MELLITUS
     Route: 048
  2. WARFARIN [Concomitant]
     Active Substance: WARFARIN
  3. ALBUTEROL NEBS AND INHALER [Concomitant]
  4. FLUTICASONE-SALMETEROL [Concomitant]
  5. RIVASTIGMINE. [Concomitant]
     Active Substance: RIVASTIGMINE
  6. RISPERIDONE. [Concomitant]
     Active Substance: RISPERIDONE
  7. FERROUS SULFATE. [Concomitant]
     Active Substance: FERROUS SULFATE
  8. LOSARTAN. [Concomitant]
     Active Substance: LOSARTAN
  9. DIGOXIN. [Concomitant]
     Active Substance: DIGOXIN
  10. NITROGLYCERIN. [Concomitant]
     Active Substance: NITROGLYCERIN
  11. CYANOCOBALAMIN. [Concomitant]
     Active Substance: CYANOCOBALAMIN
  12. ATORVASTATIN [Concomitant]
     Active Substance: ATORVASTATIN
  13. BISOPROLOL [Concomitant]
     Active Substance: BISOPROLOL

REACTIONS (1)
  - Metabolic acidosis [None]
